FAERS Safety Report 15323911 (Version 1)
Quarter: 2018Q3

REPORT INFORMATION
  Report Type: Spontaneous
  Country: US (occurrence: US)
  Receive Date: 20180828
  Receipt Date: 20180828
  Transmission Date: 20181010
  Serious: No
  Sender: FDA-Public Use
  Company Number: US-TEVA-799726USA

PATIENT
  Sex: Female

DRUGS (1)
  1. ALENDRONATE SODIUM. [Suspect]
     Active Substance: ALENDRONATE SODIUM
     Indication: BONE DISORDER

REACTIONS (2)
  - Dental care [Unknown]
  - Spinal deformity [Unknown]

NARRATIVE: CASE EVENT DATE: 2015
